FAERS Safety Report 5857938-8 (Version None)
Quarter: 2008Q3

REPORT INFORMATION
  Report Type: 
  Country: None (occurrence: None)
  Receive Date: 20080826
  Receipt Date: 20080813
  Transmission Date: 20090109
  Serious: Yes (Death, Hospitalization, Other)
  Sender: FDA-Public Use
  Company Number: ES-BAYER-200824821GPV

PATIENT
  Age: 40 Year
  Sex: Female

DRUGS (4)
  1. FLUDARABINE [Suspect]
     Indication: STEM CELL TRANSPLANT
     Route: 065
     Dates: start: 20061201, end: 20061201
  2. BUSULFAN [Suspect]
     Indication: STEM CELL TRANSPLANT
     Route: 065
     Dates: start: 20061201, end: 20061201
  3. THIOTEPA [Suspect]
     Indication: STEM CELL TRANSPLANT
     Route: 065
     Dates: start: 20061201, end: 20061201
  4. THYMOGLOBULIN [Suspect]
     Indication: STEM CELL TRANSPLANT
     Route: 065
     Dates: start: 20061201, end: 20061201

REACTIONS (12)
  - ABDOMINAL DISTENSION [None]
  - ABDOMINAL PAIN LOWER [None]
  - BLOOD CULTURE POSITIVE [None]
  - DIARRHOEA [None]
  - GRANULOCYTOPENIA [None]
  - HAEMODYNAMIC INSTABILITY [None]
  - MULTI-ORGAN FAILURE [None]
  - NEUTROPENIC COLITIS [None]
  - PERITONITIS [None]
  - PSEUDOMONAS INFECTION [None]
  - PYREXIA [None]
  - SEPTIC SHOCK [None]
